FAERS Safety Report 10390438 (Version 1)
Quarter: 2014Q3

REPORT INFORMATION
  Report Type: Spontaneous
  Country: IN (occurrence: IN)
  Receive Date: 20140818
  Receipt Date: 20140818
  Transmission Date: 20150326
  Serious: Yes (Death)
  Sender: FDA-Public Use
  Company Number: IN-PAR PHARMACEUTICAL, INC-2014SCPR009335

PATIENT

DRUGS (2)
  1. COLY-MYCIN M [Suspect]
     Active Substance: COLISTIMETHATE SODIUM
     Indication: SEPSIS
     Dosage: / DAY, 7.5 TO 10 MG PER KG
  2. COLY-MYCIN M [Suspect]
     Active Substance: COLISTIMETHATE SODIUM
     Indication: BACTERAEMIA

REACTIONS (3)
  - Nephropathy toxic [None]
  - Infection [None]
  - Death [Fatal]
